FAERS Safety Report 4458249-8 (Version None)
Quarter: 2004Q3

REPORT INFORMATION
  Report Type: 
  Country: None (occurrence: None)
  Receive Date: 20040924
  Receipt Date: 20040914
  Transmission Date: 20050211
  Serious: Yes (Disabling)
  Sender: FDA-Public Use
  Company Number: JP-JNJFOC-20040702997

PATIENT
  Age: 60 Year
  Sex: Female

DRUGS (2)
  1. LEVOFLOXACIN [Suspect]
     Indication: PNEUMONIA
     Route: 049
  2. PREDNISOLONE [Suspect]
     Route: 049

REACTIONS (7)
  - GOUT [None]
  - NO REACTION ON PREVIOUS EXPOSURE TO DRUG [None]
  - PNEUMONIA [None]
  - POST-TRAUMATIC OSTEOPOROSIS [None]
  - SINOBRONCHITIS [None]
  - TENDON DISORDER [None]
  - TENDON RUPTURE [None]
